FAERS Safety Report 9192001 (Version 1)
Quarter: 2013Q1

REPORT INFORMATION
  Report Type: Spontaneous
  Country: GB (occurrence: None)
  Receive Date: 20130326
  Receipt Date: 20130326
  Transmission Date: 20140127
  Serious: Yes (Other)
  Sender: FDA-Public Use
  Company Number: E2B_0000659

PATIENT
  Age: 67 Year
  Sex: Male
  Weight: 99.78 kg

DRUGS (4)
  1. SIMVASTATIN [Suspect]
     Indication: BLOOD CHOLESTEROL INCREASED
     Route: 048
     Dates: start: 20121026, end: 20121207
  2. AMLODIPINE (UNKNOWN) [Suspect]
     Indication: BLOOD PRESSURE
     Route: 048
     Dates: start: 20120101
  3. MOMETASONE FUROATE [Suspect]
     Indication: PRODUCT USED FOR UNKNOWN INDICATION
  4. RAMIPRIL [Concomitant]

REACTIONS (5)
  - Chest pain [None]
  - Myalgia [None]
  - Cough [None]
  - Flank pain [None]
  - Drug interaction [None]
